FAERS Safety Report 10563517 (Version 3)
Quarter: 2014Q4

REPORT INFORMATION
  Report Type: Report from Study
  Country: CA (occurrence: CA)
  Receive Date: 20141104
  Receipt Date: 20141205
  Transmission Date: 20150529
  Serious: Yes (Death, Other)
  Sender: FDA-Public Use
  Company Number: CA-INCYTE CORPORATION-2014IN002869

PATIENT
  Sex: Female

DRUGS (4)
  1. BISOPROLOL [Concomitant]
     Active Substance: BISOPROLOL
     Indication: PRODUCT USED FOR UNKNOWN INDICATION
     Dosage: UNK
  2. BISOPROLOL [Concomitant]
     Active Substance: BISOPROLOL
     Dosage: 0.5 MG
     Route: 065
  3. JAKAFI [Suspect]
     Active Substance: RUXOLITINIB
     Indication: MYELOFIBROSIS
     Dosage: 20 MG, BID
     Route: 048
     Dates: start: 20140901
  4. BISOPROLOL [Concomitant]
     Active Substance: BISOPROLOL
     Dosage: 0.5 MG
     Route: 065

REACTIONS (10)
  - Abdominal distension [Unknown]
  - Contusion [Unknown]
  - Joint swelling [Unknown]
  - Asthenia [Unknown]
  - Increased appetite [Unknown]
  - Insomnia [Unknown]
  - Dizziness [Unknown]
  - Death [Fatal]
  - Cardiac flutter [Unknown]
  - Haemoglobin decreased [Unknown]
